FAERS Safety Report 18097852 (Version 2)
Quarter: 2020Q4

REPORT INFORMATION
  Report Type: Spontaneous
  Country: US (occurrence: US)
  Receive Date: 20200730
  Receipt Date: 20201007
  Transmission Date: 20210113
  Serious: Yes (Other)
  Sender: FDA-Public Use
  Company Number: US-ROCHE-2647793

PATIENT
  Age: 63 Year
  Sex: Male
  Weight: 108.51 kg

DRUGS (10)
  1. LAMICTAL [Concomitant]
     Active Substance: LAMOTRIGINE
  2. AMPYRA [Concomitant]
     Active Substance: DALFAMPRIDINE
  3. WELLBUTRIN [Concomitant]
     Active Substance: BUPROPION HYDROCHLORIDE
     Indication: DEPRESSION
  4. XIIDRA [Concomitant]
     Active Substance: LIFITEGRAST
     Indication: EYE PAIN
     Dosage: 2 DROPS IN EACH EYE
  5. OCREVUS [Suspect]
     Active Substance: OCRELIZUMAB
     Indication: SECONDARY PROGRESSIVE MULTIPLE SCLEROSIS
     Route: 042
     Dates: start: 20200721
  6. BACLOFEN. [Concomitant]
     Active Substance: BACLOFEN
     Indication: MUSCLE SPASTICITY
     Dosage: AS NEEDED
  7. CYMBALTA [Concomitant]
     Active Substance: DULOXETINE HYDROCHLORIDE
  8. KLONOPIN [Suspect]
     Active Substance: CLONAZEPAM
     Indication: TREMOR
     Dosage: 1 AND A HALF MILLIGRAMS UPTO TWICE DAILY
     Route: 065
  9. OCREVUS [Suspect]
     Active Substance: OCRELIZUMAB
     Dosage: FIRST TWO HALF DOSES TWO WEEK APART
     Route: 042
     Dates: start: 20200801
  10. XIIDRA [Concomitant]
     Active Substance: LIFITEGRAST
     Indication: CONFUSIONAL STATE

REACTIONS (10)
  - Secondary progressive multiple sclerosis [Unknown]
  - Malaise [Unknown]
  - Pain in extremity [Unknown]
  - Intentional product use issue [Unknown]
  - Feeling abnormal [Unknown]
  - Eye disorder [Unknown]
  - Cognitive disorder [Unknown]
  - Muscular weakness [Unknown]
  - Hypoaesthesia [Unknown]
  - Off label use [Unknown]

NARRATIVE: CASE EVENT DATE: 20200721
